FAERS Safety Report 10308118 (Version 1)
Quarter: 2014Q3

REPORT INFORMATION
  Report Type: Spontaneous
  Country: US (occurrence: None)
  Receive Date: 20140715
  Receipt Date: 20140715
  Transmission Date: 20150326
  Serious: Yes (Other)
  Sender: FDA-Public Use
  Company Number: None

PATIENT
  Sex: Female

DRUGS (1)
  1. METOPROLOL ER (SUCC) TAB 100MG [Suspect]
     Active Substance: METOPROLOL SUCCINATE
     Dosage: 100MG, QDAY, PO
     Route: 048
     Dates: start: 20140402, end: 20140601

REACTIONS (4)
  - Product substitution issue [None]
  - Drug effect decreased [None]
  - Blood pressure increased [None]
  - Heart rate increased [None]
